FAERS Safety Report 6347276-1 (Version None)
Quarter: 2009Q3

REPORT INFORMATION
  Report Type: 
  Country: None (occurrence: None)
  Receive Date: 20090910
  Receipt Date: 20090908
  Transmission Date: 20100115
  Serious: Yes (Other)
  Sender: FDA-Public Use
  Company Number: US-KINGPHARMUSA00001-K200901092

PATIENT
  Age: 81 Year
  Sex: Female

DRUGS (4)
  1. ALTACE [Suspect]
     Indication: CEREBROVASCULAR ACCIDENT
     Dosage: 5 MG, QD
     Route: 048
     Dates: start: 20090506, end: 20090527
  2. OMEPRAZOL [Concomitant]
     Indication: DYSPHAGIA
     Dosage: 20 MG, UNK
     Route: 048
     Dates: start: 20090205, end: 20090601
  3. CARDYL [Concomitant]
     Indication: CEREBROVASCULAR ACCIDENT
     Dosage: 80 MG, UNK
     Route: 048
     Dates: start: 20090506, end: 20090601
  4. ISCOVER [Concomitant]
     Indication: CEREBROVASCULAR ACCIDENT
     Dosage: 75 MG, UNK
     Route: 048
     Dates: start: 20090506

REACTIONS (4)
  - DECREASED APPETITE [None]
  - DIARRHOEA [None]
  - DYSGEUSIA [None]
  - WEIGHT DECREASED [None]
